FAERS Safety Report 9745313 (Version 2)
Quarter: 2013Q4

REPORT INFORMATION
  Report Type: Spontaneous
  Country: FR (occurrence: FR)
  Receive Date: 20131211
  Receipt Date: 20131230
  Transmission Date: 20140711
  Serious: Yes (Other)
  Sender: FDA-Public Use
  Company Number: FR-ROCHE-1317518

PATIENT
  Age: 40 Year
  Sex: Female
  Weight: 60 kg

DRUGS (8)
  1. ZELBORAF [Suspect]
     Indication: METASTATIC MALIGNANT MELANOMA
     Route: 048
     Dates: start: 20131104, end: 20131218
  2. PRIMPERAN (FRANCE) [Concomitant]
     Indication: NAUSEA
     Route: 048
     Dates: start: 20131213
  3. TRAMADOL [Concomitant]
     Indication: PAIN
     Route: 048
     Dates: start: 20131213
  4. KEPPRA [Concomitant]
     Indication: EPILEPSY
     Route: 048
  5. PARACETAMOL [Concomitant]
     Indication: PAIN
     Route: 048
  6. AMOXICILLINE [Concomitant]
     Indication: OROPHARYNGEAL PAIN
     Route: 048
     Dates: start: 20131218
  7. IMOVANE [Concomitant]
     Indication: INSOMNIA
     Route: 048
     Dates: start: 20131218
  8. CLIMASTON [Concomitant]
     Indication: HORMONE THERAPY
     Route: 065

REACTIONS (7)
  - Urinary tract infection [Not Recovered/Not Resolved]
  - Loose tooth [Unknown]
  - Arthralgia [Unknown]
  - Nausea [Unknown]
  - Alopecia [Unknown]
  - Rash [Unknown]
  - Induration [Unknown]
